FAERS Safety Report 5734637-4 (Version None)
Quarter: 2008Q2

REPORT INFORMATION
  Report Type: 
  Country: None (occurrence: None)
  Receive Date: 20080512
  Receipt Date: 20080506
  Transmission Date: 20081010
  Serious: Yes (Death, Other)
  Sender: FDA-Public Use
  Company Number: PHHY2008CA01684

PATIENT
  Age: 84 Year
  Sex: Male

DRUGS (1)
  1. EXELON [Suspect]
     Dosage: 3 MG, BID
     Route: 048
     Dates: start: 20071019, end: 20080122

REACTIONS (2)
  - PARKINSONISM [None]
  - WEIGHT DECREASED [None]
